FAERS Safety Report 9251056 (Version 1)
Quarter: 2013Q1

REPORT INFORMATION
  Report Type: Spontaneous
  Country: US (occurrence: None)
  Receive Date: 20130305
  Receipt Date: 20130305
  Transmission Date: 20140127
  Serious: Yes (Life-Threatening, Hospitalization, Other)
  Sender: FDA-Public Use
  Company Number: 163-21880-12071777

PATIENT
  Age: 68 Year
  Sex: Male
  Weight: 107.96 kg

DRUGS (12)
  1. REVLIMID [Suspect]
     Indication: PLASMA CELL MYELOMA
     Dosage: 10 MG, 28 IN 28 D, PO?03/01/2012 - TEMPORARILY INTERRUPTED
     Route: 048
     Dates: start: 20120301
  2. AMIIODARONE (AMIODARONE) [Concomitant]
  3. ASPIRIN LOW (ACETYLSALICYLIC ACID) [Concomitant]
  4. CALCIUM (CALCIUM) [Concomitant]
  5. CARDIZEM (DILTIAZEM HYDROCHLORIDE) [Concomitant]
  6. METOPROLOL (METOPROLOL) [Concomitant]
  7. NITROGLYCERIN [Concomitant]
  8. POTASSIUM CHLORIDE (POTASSIUM CHLORIDE) [Concomitant]
  9. SIMVASTATIN (SIMVASTATIN) [Concomitant]
  10. VALTREX (VALACICLOVIR HYDROCHLORIDE) [Concomitant]
  11. WARFARIN (WARFARIN) [Concomitant]
  12. ZOMETA (ZOLEDRONIC ACID) [Concomitant]

REACTIONS (4)
  - Pneumonia [None]
  - Cerebrovascular accident [None]
  - Atrial fibrillation [None]
  - Candida infection [None]
